FAERS Safety Report 5860016-5 (Version None)
Quarter: 2008Q3

REPORT INFORMATION
  Report Type: 
  Country: None (occurrence: None)
  Receive Date: 20080827
  Receipt Date: 20080805
  Transmission Date: 20090109
  Serious: Yes (Hospitalization, Other)
  Sender: FDA-Public Use
  Company Number: ES-SANOFI-SYNTHELABO-F01200801276

PATIENT
  Sex: Male
  Weight: 92 kg

DRUGS (2)
  1. CAPECITABINE [Suspect]
     Dates: start: 20070423, end: 20070525
  2. OXALIPLATIN [Suspect]
     Indication: RECTAL CANCER
     Route: 042
     Dates: start: 20070525, end: 20070525

REACTIONS (3)
  - LIVER ABSCESS [None]
  - RESPIRATORY FAILURE [None]
  - SEPSIS [None]
